FAERS Safety Report 5475738-8 (Version None)
Quarter: 2007Q4

REPORT INFORMATION
  Report Type: 
  Country: None (occurrence: None)
  Receive Date: 20071003
  Receipt Date: 20070924
  Transmission Date: 20080405
  Serious: Yes (Hospitalization)
  Sender: FDA-Public Use
  Company Number: US-ABBOTT-07P-163-0418332-00

PATIENT
  Sex: Female
  Weight: 72.64 kg

DRUGS (2)
  1. HUMIRA [Suspect]
     Indication: PSORIASIS
     Route: 058
     Dates: start: 20070823, end: 20070924
  2. HUMIRA [Suspect]
     Indication: PSORIATIC ARTHROPATHY

REACTIONS (4)
  - CYSTITIS [None]
  - FALL [None]
  - OEDEMA PERIPHERAL [None]
  - PAIN IN EXTREMITY [None]
